FAERS Safety Report 7959634-X (Version None)
Quarter: 2011Q4

REPORT INFORMATION
  Report Type: 
  Country: None (occurrence: None)
  Receive Date: 20111206
  Receipt Date: 20111121
  Transmission Date: 20120403
  Serious: Yes (Hospitalization)
  Sender: FDA-Public Use
  Company Number: US-WATSON-2011-18881

PATIENT
  Sex: Female
  Weight: 162 kg

DRUGS (9)
  1. PRAVASTATIN [Concomitant]
     Indication: BLOOD CHOLESTEROL
     Dosage: 1/2 AT NIGHT
  2. NAPROXEN [Suspect]
     Indication: MUSCULOSKELETAL PAIN
     Dosage: 2-3 DAILY, USED FOR ^NEARLY 8 MONTHS^
     Route: 048
     Dates: start: 20101001, end: 20111022
  3. AMLODIPINE [Concomitant]
     Indication: BLOOD PRESSURE
     Dosage: 1/2 PILL DAILY AT NIGH
     Dates: start: 20111019
  4. OMEPRAZOLE [Concomitant]
     Indication: ULCER
     Dosage: 2 WITH BREAKFAST AND DINNER DAILY
     Dates: start: 20111108
  5. TYLENOL-500 [Concomitant]
     Indication: MUSCULOSKELETAL PAIN
     Dosage: 650 MG, 2 EVERY 6 HOURS
     Dates: start: 20111108
  6. NAPROXEN [Suspect]
     Indication: RHEUMATOID ARTHRITIS
  7. METFORMIN HCL [Concomitant]
     Indication: DIABETES MELLITUS
     Dosage: 6-7 YEARS; 2X DAILY
  8. LISINOPRIL AND HYDROCHLOROTHIAZIDE [Concomitant]
     Indication: BLOOD PRESSURE
     Dosage: X 6-7 YERAS, 12.5/20 MG 2 X DAILY
  9. FLUOXETINE [Concomitant]
     Indication: ANXIETY
     Dosage: X 5-6 YEARS,  1X DAILY AM

REACTIONS (11)
  - MELAENA [None]
  - GASTRIC HAEMORRHAGE [None]
  - FATIGUE [None]
  - DIZZINESS [None]
  - NAUSEA [None]
  - ASTHENIA [None]
  - GASTRIC ULCER HAEMORRHAGE [None]
  - DIARRHOEA [None]
  - DEHYDRATION [None]
  - ABDOMINAL DISCOMFORT [None]
  - MALAISE [None]
